FAERS Safety Report 20003125 (Version 1)
Quarter: 2021Q4

REPORT INFORMATION
  Report Type: Spontaneous
  Country: TR (occurrence: TR)
  Receive Date: 20211027
  Receipt Date: 20211027
  Transmission Date: 20220303
  Serious: Yes (Death, Other)
  Sender: FDA-Public Use
  Company Number: TR-LAT-21102015004727EM

PATIENT

DRUGS (1)
  1. IBRUTINIB [Suspect]
     Active Substance: IBRUTINIB
     Indication: Chronic lymphocytic leukaemia refractory
     Route: 048

REACTIONS (8)
  - Death [Fatal]
  - Neutropenia [Unknown]
  - Thrombocytopenia [Unknown]
  - Pneumonia [Unknown]
  - Haemorrhage [Unknown]
  - Atrial fibrillation [Unknown]
  - Drug ineffective [Unknown]
  - Hypertension [Unknown]
